FAERS Safety Report 9655590 (Version 2)
Quarter: 2013Q4

REPORT INFORMATION
  Report Type: Spontaneous
  Country: GB (occurrence: GB)
  Receive Date: 20131030
  Receipt Date: 20131030
  Transmission Date: 20140711
  Serious: Yes (Other)
  Sender: FDA-Public Use
  Company Number: GB-AMGEN-GBRSP2013063267

PATIENT
  Age: 65 Year
  Sex: Female
  Weight: 63.8 kg

DRUGS (3)
  1. ENBREL [Suspect]
     Indication: PSORIATIC ARTHROPATHY
     Dosage: 50 MG, WEEKLY
     Route: 058
     Dates: start: 20130724, end: 20130821
  2. ENBREL [Suspect]
     Indication: RHEUMATOID ARTHRITIS
  3. METHOTREXATE [Concomitant]
     Indication: PSORIATIC ARTHROPATHY
     Dosage: 7.5 MG, WEEKLY
     Route: 048
     Dates: start: 2004

REACTIONS (12)
  - Anxiety [Recovering/Resolving]
  - Irritability [Recovering/Resolving]
  - Rhinitis [Recovering/Resolving]
  - Headache [Not Recovered/Not Resolved]
  - Sinus disorder [Unknown]
  - Nasal congestion [Unknown]
  - Rhinorrhoea [Unknown]
  - Agitation [Unknown]
  - Depression [Recovering/Resolving]
  - Irritable bowel syndrome [Recovering/Resolving]
  - Rash erythematous [Unknown]
  - Pain of skin [Unknown]
